FAERS Safety Report 16571463 (Version 2)
Quarter: 2019Q3

REPORT INFORMATION
  Report Type: Spontaneous
  Country: US (occurrence: US)
  Receive Date: 20190715
  Receipt Date: 20190729
  Transmission Date: 20191004
  Serious: Yes (Other)
  Sender: FDA-Public Use
  Company Number: US-BAYER-2019-132118

PATIENT
  Age: 33 Year
  Sex: Female
  Weight: 89.35 kg

DRUGS (2)
  1. ANALGESIA [Concomitant]
     Active Substance: UNSPECIFIED INGREDIENT
  2. KYLEENA [Suspect]
     Active Substance: LEVONORGESTREL
     Indication: CONTRACEPTION
     Dosage: 17.5 MCG/24HR, CONT
     Route: 015
     Dates: start: 20190619, end: 20190619

REACTIONS (2)
  - Uterine perforation [Recovered/Resolved]
  - Complication of device insertion [Recovered/Resolved]

NARRATIVE: CASE EVENT DATE: 20190619
